FAERS Safety Report 23975149 (Version 1)
Quarter: 2024Q2

REPORT INFORMATION
  Report Type: Spontaneous
  Country: DE (occurrence: DE)
  Receive Date: 20240614
  Receipt Date: 20240614
  Transmission Date: 20240715
  Serious: Yes (Other)
  Sender: FDA-Public Use
  Company Number: None

PATIENT
  Age: 85 Year
  Sex: Female
  Weight: 56 kg

DRUGS (2)
  1. IVABRADINE [Suspect]
     Active Substance: IVABRADINE
     Indication: Cardiac failure
     Dosage: 2 X 1/2 TABLET, 5 MG EACH (TABLET DIVIDED BY YOURSELF)
     Route: 048
     Dates: start: 20200101
  2. IVABRADINE [Suspect]
     Active Substance: IVABRADINE
     Indication: Blood pressure decreased

REACTIONS (4)
  - Haematemesis [Recovering/Resolving]
  - Abdominal pain upper [Recovering/Resolving]
  - Oesophageal pain [Recovering/Resolving]
  - Oral discomfort [Recovering/Resolving]

NARRATIVE: CASE EVENT DATE: 20210101
